FAERS Safety Report 6511489-6 (Version None)
Quarter: 2009Q4

REPORT INFORMATION
  Report Type: 
  Country: None (occurrence: None)
  Receive Date: 20091222
  Receipt Date: 20091217
  Transmission Date: 20100525
  Serious: Yes (Other)
  Sender: FDA-Public Use
  Company Number: US-WYE-H12686309

PATIENT
  Sex: Male
  Weight: 86.26 kg

DRUGS (3)
  1. PRISTIQ [Suspect]
     Indication: DEPRESSION
     Route: 048
     Dates: start: 20090901
  2. RISPERDAL [Concomitant]
  3. XANAX [Concomitant]

REACTIONS (6)
  - DRUG INEFFECTIVE [None]
  - FORMICATION [None]
  - INSOMNIA [None]
  - MORBID THOUGHTS [None]
  - PRURITUS [None]
  - SUICIDAL IDEATION [None]
